FAERS Safety Report 5373727-5 (Version None)
Quarter: 2007Q2

REPORT INFORMATION
  Report Type: 
  Country: None (occurrence: None)
  Receive Date: 20070628
  Receipt Date: 20070312
  Transmission Date: 20071010
  Serious: Yes (Other)
  Sender: FDA-Public Use
  Company Number: US-SANOFI-SYNTHELABO-A03200704238

PATIENT
  Age: 27 Year
  Sex: Female

DRUGS (6)
  1. CLONAZEPAM [Concomitant]
     Dosage: UNK
     Route: 048
  2. BUSPIRONE [Concomitant]
     Dosage: UNK
     Route: 048
  3. PRENATAL VITAMINS [Concomitant]
     Dosage: UNK
     Route: 048
  4. LEXAPRO [Concomitant]
     Dosage: UNK
     Route: 048
  5. AMBIEN [Suspect]
     Indication: INSOMNIA
     Route: 048
     Dates: start: 20051111, end: 20060427
  6. AMBIEN [Suspect]
     Indication: POSTPARTUM DEPRESSION
     Route: 048
     Dates: start: 20051111, end: 20060427

REACTIONS (9)
  - AGGRESSION [None]
  - AMNESIA [None]
  - DEPRESSION [None]
  - MOOD ALTERED [None]
  - ROAD TRAFFIC ACCIDENT [None]
  - SLEEP TALKING [None]
  - SLEEP WALKING [None]
  - TRANCE [None]
  - VISUAL DISTURBANCE [None]
